FAERS Safety Report 10338303 (Version 2)
Quarter: 2014Q3

REPORT INFORMATION
  Report Type: Spontaneous
  Country: US (occurrence: US)
  Receive Date: 20140724
  Receipt Date: 20140807
  Transmission Date: 20150326
  Serious: Yes (Hospitalization)
  Sender: FDA-Public Use
  Company Number: US-BAYER-2014-109182

PATIENT
  Age: 40 Year
  Sex: Female
  Weight: 94.74 kg

DRUGS (11)
  1. YASMIN [Suspect]
     Active Substance: DROSPIRENONE\ETHINYL ESTRADIOL
     Indication: MENSTRUAL CYCLE MANAGEMENT
     Dosage: UNK
     Dates: start: 200506, end: 200610
  2. INDOCIN [Concomitant]
     Active Substance: INDOMETHACIN\INDOMETHACIN SODIUM
     Dosage: 50 MG, TID
     Route: 048
  3. HYDROCHLOROTHIAZIDE. [Concomitant]
     Active Substance: HYDROCHLOROTHIAZIDE
     Indication: DIURETIC THERAPY
     Dosage: 25 MG, QD
     Route: 048
  4. THEOPHYLLINE [Concomitant]
     Active Substance: THEOPHYLLINE
     Indication: ASTHMA
     Dosage: 300 MG, BID
     Route: 048
  5. PREDNISONE. [Concomitant]
     Active Substance: PREDNISONE
     Indication: ASTHMA
     Dosage: 5 MG DAILY TOOK 6 PILLS MORNING
     Route: 048
  6. NEXIUM [Concomitant]
     Active Substance: ESOMEPRAZOLE MAGNESIUM
     Indication: GASTROOESOPHAGEAL REFLUX DISEASE
     Dosage: 40 MG, BID
     Route: 048
  7. ALUPENT [Concomitant]
     Active Substance: METAPROTERENOL SULFATE
     Indication: ASTHMA
     Dosage: 2 PUFFS PRN
  8. ADVAIR HFA [Concomitant]
     Active Substance: FLUTICASONE PROPIONATE\SALMETEROL XINAFOATE
     Indication: ASTHMA
     Dosage: ONE PUFF PRN
     Route: 045
  9. HYDROCHLOROTHIAZIDE. [Concomitant]
     Active Substance: HYDROCHLOROTHIAZIDE
     Indication: BLOOD PRESSURE
  10. ALEVE [Concomitant]
     Active Substance: NAPROXEN SODIUM
     Indication: HEADACHE
  11. SINGULAIR [Concomitant]
     Active Substance: MONTELUKAST SODIUM
     Indication: ASTHMA
     Dosage: 10 MG, QD
     Route: 048

REACTIONS (6)
  - General physical health deterioration [None]
  - Emotional distress [None]
  - Anxiety [None]
  - Injury [None]
  - Pain [None]
  - Pulmonary embolism [None]

NARRATIVE: CASE EVENT DATE: 20061107
